FAERS Safety Report 7053639-1 (Version None)
Quarter: 2010Q4

REPORT INFORMATION
  Report Type: 
  Country: None (occurrence: None)
  Receive Date: 20101015
  Receipt Date: 20101006
  Transmission Date: 20110411
  Serious: Yes (Life-Threatening)
  Sender: FDA-Public Use
  Company Number: 2010MA003401

PATIENT
  Age: 83 Year
  Sex: Female

DRUGS (5)
  1. MIRTAZAPINE [Suspect]
     Indication: DEPRESSION
     Dosage: 30 MG;PO
     Route: 048
     Dates: start: 20100817, end: 20100827
  2. OLANZAPINE [Suspect]
  3. ARIPIPRAZOLE [Concomitant]
  4. AMLODIPINE [Concomitant]
  5. BENDROFLUMETHIAZIDE [Concomitant]

REACTIONS (1)
  - ELECTROCARDIOGRAM QT PROLONGED [None]
